FAERS Safety Report 19919359 (Version 1)
Quarter: 2021Q4

REPORT INFORMATION
  Report Type: Spontaneous
  Country: FR (occurrence: FR)
  Receive Date: 20211005
  Receipt Date: 20211005
  Transmission Date: 20220303
  Serious: Yes (Death, Other)
  Sender: FDA-Public Use
  Company Number: FR-PFIZER INC-2021619189

PATIENT
  Age: 44 Year
  Sex: Female

DRUGS (26)
  1. METHOTREXATE [Suspect]
     Active Substance: METHOTREXATE
     Indication: Burkitt^s leukaemia
     Dosage: 8 GRAM PER SQUARE METRE, CYCLE (8 G/M2, D1)
  2. METHOTREXATE [Suspect]
     Active Substance: METHOTREXATE
     Dosage: 3 GRAM PER SQUARE METRE, CYCLE (3 G/M2/DAY ON DAY 1)
  3. ETOPOSIDE [Suspect]
     Active Substance: ETOPOSIDE
     Indication: Burkitt^s leukaemia
     Dosage: 200 MILLIGRAM/SQ. METER, CYCLE (200 MG/M2/DAY ON DAY 2 TO DAY 5)
  4. ETOPOSIDE [Suspect]
     Active Substance: ETOPOSIDE
     Dosage: 150 MILLIGRAM/SQ. METER, CYCLE (150 MG/M2, D1-D3)
  5. ETOPOSIDE [Suspect]
     Active Substance: ETOPOSIDE
     Dosage: 150 MILLIGRAM/SQ. METER, CYCLE (150 MG/M2, D1-D3)
  6. PREDNISONE [Suspect]
     Active Substance: PREDNISONE
     Indication: Burkitt^s leukaemia
     Dosage: 60 MILLIGRAM/SQ. METER, CYCLE (60 MG/M2/DAY FROM DAY 1 TO DAY 7)
  7. PREDNISONE [Suspect]
     Active Substance: PREDNISONE
     Dosage: 60 MILLIGRAM/SQ. METER, CYCLE (60 MG/M2, D1-D5)
  8. PREDNISONE [Suspect]
     Active Substance: PREDNISONE
     Dosage: 60 MILLIGRAM/SQ. METER, CYCLE (60 MG/M2, D1-D5)
  9. PREDNISONE [Suspect]
     Active Substance: PREDNISONE
     Dosage: 60 MILLIGRAM/SQ. METER, CYCLE (60 MG/M2/DAY FROM DAY 1 TO DAY 7)
  10. CYTARABINE [Suspect]
     Active Substance: CYTARABINE
     Indication: Burkitt^s leukaemia
     Dosage: 100 MILLIGRAM/SQ. METER, CYCLE (100 MG/M2, D1-D5)
     Route: 058
  11. CYTARABINE [Suspect]
     Active Substance: CYTARABINE
     Dosage: 100 MILLIGRAM/SQ. METER, CYCLE (100 MG/M2, D1-D5)
     Route: 058
  12. CYTARABINE [Suspect]
     Active Substance: CYTARABINE
     Dosage: 50 MILLIGRAM/SQ. METER, CYCLE (50 MG/M2/DAY FROM DAY 1 TO DAY 5 (12-H INFUSION BEFORE HIGHDOSE ARA)
  13. CYTARABINE [Suspect]
     Active Substance: CYTARABINE
     Dosage: UNK, CYCLE (3 G/M2/DAY FROM DAY 2 TO DAY 5)
  14. DOXORUBICIN HYDROCHLORIDE [Suspect]
     Active Substance: DOXORUBICIN HYDROCHLORIDE
     Indication: Burkitt^s leukaemia
     Dosage: 60 MILLIGRAM/SQ. METER, CYCLE (60 MG/M2, D3)
  15. DOXORUBICIN HYDROCHLORIDE [Suspect]
     Active Substance: DOXORUBICIN HYDROCHLORIDE
     Dosage: 60 MILLIGRAM/SQ. METER, CYCLE (60 MG/M2, D3)
  16. DOXORUBICIN HYDROCHLORIDE [Suspect]
     Active Substance: DOXORUBICIN HYDROCHLORIDE
     Dosage: 60 MILLIGRAM/SQ. METER, CYCLE (60 MG/M2/DAY ON DAY 2)
  17. VINCRISTINE SULFATE [Suspect]
     Active Substance: VINCRISTINE SULFATE
     Indication: Burkitt^s leukaemia
     Dosage: 2 MILLIGRAM, CYCLE (2 MG, D2)
  18. VINCRISTINE SULFATE [Suspect]
     Active Substance: VINCRISTINE SULFATE
     Dosage: 2 MILLIGRAM, CYCLE (2 MG/DAY ON DAY 1 AND DAY 6)
  19. VINCRISTINE SULFATE [Suspect]
     Active Substance: VINCRISTINE SULFATE
     Dosage: 2 MILLIGRAM, CYCLE (2 MG/DAY ON DAY 1)
  20. VINCRISTINE SULFATE [Suspect]
     Active Substance: VINCRISTINE SULFATE
     Dosage: 2 MILLIGRAM, CYCLE (2 MG, D2)
  21. VINCRISTINE SULFATE [Suspect]
     Active Substance: VINCRISTINE SULFATE
     Dosage: 2 MILLIGRAM, CYCLE (2 MG/DAY ON DAY 1)
  22. CYCLOPHOSPHAMIDE [Suspect]
     Active Substance: CYCLOPHOSPHAMIDE
     Indication: Burkitt^s leukaemia
     Dosage: 500 MILLIGRAM/SQ. METER, CYCLE (500 MG/M2/DAY FROM DAY 2 TO DAY 4)
  23. CYCLOPHOSPHAMIDE [Suspect]
     Active Substance: CYCLOPHOSPHAMIDE
     Dosage: 500 MILLIGRAM/SQ. METER, CYCLE (500 MG/M2, D2, D3)
  24. CYCLOPHOSPHAMIDE [Suspect]
     Active Substance: CYCLOPHOSPHAMIDE
     Dosage: 500 MILLIGRAM/SQ. METER, CYCLE (500 MG/M2, D2, D3)
  25. CYCLOPHOSPHAMIDE [Suspect]
     Active Substance: CYCLOPHOSPHAMIDE
     Dosage: 300 MILLIGRAM/SQ. METER, CYCLE (300 MG/M2/DAY ON DAY 1)
  26. CYCLOPHOSPHAMIDE [Suspect]
     Active Substance: CYCLOPHOSPHAMIDE
     Dosage: 1000 MILLIGRAM/SQ. METER, CYCLE (1000 MG/M2/DAY FROM DAY 2 TO DAY 4)

REACTIONS (1)
  - Sepsis [Fatal]
